FAERS Safety Report 21258311 (Version 1)
Quarter: 2022Q3

REPORT INFORMATION
  Report Type: Report from Study
  Country: BR (occurrence: BR)
  Receive Date: 20220826
  Receipt Date: 20220826
  Transmission Date: 20221026
  Serious: Yes (Other)
  Sender: FDA-Public Use
  Company Number: BR-JNJFOC-20220845664

PATIENT
  Age: 6 Decade
  Sex: Male
  Weight: 55 kg

DRUGS (1)
  1. INFLIXIMAB [Suspect]
     Active Substance: INFLIXIMAB
     Indication: Crohn^s disease
     Route: 041
     Dates: start: 20100312

REACTIONS (2)
  - Anorectal operation [Unknown]
  - Intestinal resection [Unknown]

NARRATIVE: CASE EVENT DATE: 20110101
